FAERS Safety Report 6059760-9 (Version None)
Quarter: 2009Q1

REPORT INFORMATION
  Report Type: 
  Country: None (occurrence: None)
  Receive Date: 20090130
  Receipt Date: 20090122
  Transmission Date: 20090719
  Serious: Yes (Life-Threatening, Hospitalization)
  Sender: FDA-Public Use
  Company Number: US-CELGENEUS-163-50794-09011265

PATIENT
  Sex: Male
  Weight: 90.7 kg

DRUGS (2)
  1. VIDAZA [Suspect]
     Indication: MYELODYSPLASTIC SYNDROME
     Route: 051
     Dates: start: 20090105, end: 20090109
  2. VIDAZA [Suspect]
     Route: 051
     Dates: start: 20080519

REACTIONS (3)
  - COMPRESSION FRACTURE [None]
  - FEBRILE NEUTROPENIA [None]
  - PNEUMONIA [None]
